FAERS Safety Report 19391079 (Version 1)
Quarter: 2021Q2

REPORT INFORMATION
  Report Type: Report from Study
  Country: FR (occurrence: FR)
  Receive Date: 20210608
  Receipt Date: 20210608
  Transmission Date: 20210717
  Serious: Yes (Other)
  Sender: FDA-Public Use
  Company Number: FR-TAKEDA-2021TUS036165

PATIENT
  Age: 55 Year
  Sex: Male

DRUGS (12)
  1. TEDUGLUTIDE [Suspect]
     Active Substance: TEDUGLUTIDE
     Indication: SHORT-BOWEL SYNDROME
     Dosage: 0.05 MILLIGRAM/KILOGRAM, QD
     Route: 065
     Dates: start: 20170123, end: 201704
  2. TEDUGLUTIDE [Suspect]
     Active Substance: TEDUGLUTIDE
     Indication: SHORT-BOWEL SYNDROME
     Dosage: 0.05 MILLIGRAM/KILOGRAM, QD
     Route: 065
     Dates: start: 20170123, end: 201704
  3. TEDUGLUTIDE [Suspect]
     Active Substance: TEDUGLUTIDE
     Dosage: 0.05 MILLIGRAM/KILOGRAM, QD
     Route: 065
     Dates: start: 201704
  4. TEDUGLUTIDE [Suspect]
     Active Substance: TEDUGLUTIDE
     Dosage: 0.05 MILLIGRAM/KILOGRAM, QD
     Route: 065
     Dates: start: 201704
  5. VALACICLOVIR [Concomitant]
     Active Substance: VALACYCLOVIR HYDROCHLORIDE
     Indication: ANTIVIRAL TREATMENT
     Dosage: 500 MILLIGRAM, BID
     Route: 048
     Dates: start: 20180910
  6. MAGNESIUM CARBONATE [Concomitant]
     Active Substance: MAGNESIUM CARBONATE
     Indication: HYPERCALCIURIA
     Dosage: 1 UNK
     Route: 065
     Dates: start: 201808
  7. MAGNESIUM CITRATE. [Concomitant]
     Active Substance: MAGNESIUM CITRATE
     Indication: HYPERCALCIURIA
     Dosage: 100 MILLIGRAM, TID
     Route: 048
     Dates: start: 201904
  8. TEDUGLUTIDE [Suspect]
     Active Substance: TEDUGLUTIDE
     Dosage: 0.05 MILLIGRAM/KILOGRAM, QD
     Route: 065
     Dates: start: 201704
  9. ACLASTA [Concomitant]
     Active Substance: ZOLEDRONIC ACID
     Indication: OSTEOPOROSIS
     Dosage: 5 MILLIGRAM
     Route: 042
     Dates: start: 201904
  10. TEDUGLUTIDE [Suspect]
     Active Substance: TEDUGLUTIDE
     Dosage: 0.05 MILLIGRAM/KILOGRAM, QD
     Route: 065
     Dates: start: 201704
  11. TEDUGLUTIDE [Suspect]
     Active Substance: TEDUGLUTIDE
     Indication: SHORT-BOWEL SYNDROME
     Dosage: 0.05 MILLIGRAM/KILOGRAM, QD
     Route: 065
     Dates: start: 20170123, end: 201704
  12. TEDUGLUTIDE [Suspect]
     Active Substance: TEDUGLUTIDE
     Indication: SHORT-BOWEL SYNDROME
     Dosage: 0.05 MILLIGRAM/KILOGRAM, QD
     Route: 065
     Dates: start: 20170123, end: 201704

REACTIONS (1)
  - Nephrolithiasis [Recovered/Resolved with Sequelae]

NARRATIVE: CASE EVENT DATE: 201909
